FAERS Safety Report 4745902-1 (Version None)
Quarter: 2005Q3

REPORT INFORMATION
  Report Type: 
  Country: None (occurrence: None)
  Receive Date: 20050816
  Receipt Date: 20050629
  Transmission Date: 20060218
  Serious: Yes (Other)
  Sender: FDA-Public Use
  Company Number: DE-AMGEN-UK140793

PATIENT
  Sex: Male
  Weight: 65 kg

DRUGS (8)
  1. MIMPARA [Suspect]
     Indication: HYPERPARATHYROIDISM SECONDARY
     Route: 048
     Dates: start: 20041220
  2. PREDNISOLONE [Concomitant]
     Route: 048
  3. PANTOPRAZOLE [Concomitant]
     Route: 048
  4. SIMVASTATIN [Concomitant]
     Route: 048
  5. ONE-ALPHA [Concomitant]
     Route: 048
  6. ALENDRONATE SODIUM [Concomitant]
     Route: 048
  7. ASPIRIN [Concomitant]
     Route: 048
  8. NOVAMINSULFON-RATIOPHARM [Concomitant]
     Route: 048

REACTIONS (3)
  - DEPRESSION [None]
  - IMPULSE-CONTROL DISORDER [None]
  - MANIA [None]
